FAERS Safety Report 4311893-0 (Version None)
Quarter: 2004Q1

REPORT INFORMATION
  Report Type: 
  Country: None (occurrence: None)
  Receive Date: 20040303
  Receipt Date: 20040216
  Transmission Date: 20041129
  Serious: Yes (Hospitalization)
  Sender: FDA-Public Use
  Company Number: DSA_24004_2004

PATIENT
  Age: 82 Year
  Sex: Male
  Weight: 72 kg

DRUGS (1)
  1. KEIMAX [Suspect]
     Indication: BRONCHITIS
     Dosage: 400 MG QD PO
     Route: 048
     Dates: start: 20031006, end: 20031015

REACTIONS (1)
  - EPILEPSY [None]
